FAERS Safety Report 24266380 (Version 1)
Quarter: 2024Q3

REPORT INFORMATION
  Report Type: Spontaneous
  Country: US (occurrence: US)
  Receive Date: 20240830
  Receipt Date: 20240830
  Transmission Date: 20241017
  Serious: Yes (Other)
  Sender: AMGEN
  Company Number: US-AMGEN-USASP2024167491

PATIENT
  Age: 71 Year
  Sex: Female

DRUGS (22)
  1. NEULASTA [Suspect]
     Active Substance: PEGFILGRASTIM
     Indication: Prophylaxis
     Dosage: 6 MILLIGRAM, ONE TIME DOSE, ONCE, CYCLE 1 OF 4
     Route: 058
     Dates: start: 20231204
  2. NEULASTA [Suspect]
     Active Substance: PEGFILGRASTIM
     Dosage: 6 MILLIGRAM, ONE TIME DOSE, CYCLE 1 OF 1
     Route: 058
     Dates: start: 20240111
  3. ENFORTUMAB VEDOTIN [Concomitant]
     Active Substance: ENFORTUMAB VEDOTIN
     Indication: Bladder cancer
     Dosage: UNK, Q3WK, EVERY 28 DAYS
     Dates: start: 20240424
  4. ATEZOLIZUMAB [Concomitant]
     Active Substance: ATEZOLIZUMAB
     Indication: Bladder cancer
     Dosage: 1200 MILLIGRAM, ONE TIME DOSE 1 OF 37 CYCLE
     Route: 042
     Dates: start: 20231107, end: 20240402
  5. CARBOPLATIN [Concomitant]
     Active Substance: CARBOPLATIN
     Indication: Bladder cancer
     Dosage: 440 MILLIGRAM, ONE TIME DOSE 1 OF 6 CYCLE
     Route: 042
     Dates: start: 20231107, end: 20240402
  6. ETOPOSIDE [Concomitant]
     Active Substance: ETOPOSIDE
     Indication: Bladder cancer
     Dosage: 140 MILLIGRAM, ONE TIME DOSE  1 OF 5 CYCLE
     Route: 042
     Dates: start: 20231107, end: 20240402
  7. DEXAMETHASONE [Concomitant]
     Active Substance: DEXAMETHASONE
     Indication: Bladder cancer
     Dosage: 12 MILLIGRAM, ONE TIME DOSE 1 OF 4 CYCLE
     Route: 042
     Dates: start: 20231107
  8. METHYLPREDNISOLONE [Concomitant]
     Active Substance: METHYLPREDNISOLONE
     Indication: Bladder cancer
     Dosage: 125 MILLIGRAM, ONE TIME DOSE 8 OF CYCLE 37
     Route: 042
     Dates: start: 20231129
  9. OLANZAPINE [Concomitant]
     Active Substance: OLANZAPINE
     Indication: Bladder cancer
     Dosage: 5 MILLIGRAM, ONE TIME DOSE 1 OF 6 CYCLE
     Route: 048
     Dates: start: 20231107
  10. ONDANSETRON [Concomitant]
     Active Substance: ONDANSETRON
     Dosage: 8 MILLIGRAM, ONE TIME DOSE 1 OF 2 CYCLE
     Route: 048
     Dates: start: 20231108
  11. SODIUM CHLORIDE [Concomitant]
     Active Substance: SODIUM CHLORIDE
     Indication: Bladder cancer
     Dosage: 250 MILLILITER, ONE TIME DOSE 1 OF 37 CYCLE
     Route: 042
     Dates: start: 20231107
  12. DIPHENHYDRAMINE [Concomitant]
     Active Substance: DIPHENHYDRAMINE
     Indication: Bladder cancer
     Dosage: 25 MILLIGRAM, ONE TIME DOSE 8 OF 37 CYCLE
     Route: 042
     Dates: start: 20231129
  13. FAMOTIDINE [Concomitant]
     Active Substance: FAMOTIDINE
     Indication: Bladder cancer
     Dosage: 20 MILLIGRAM, ONE TIME DOSE 8 OF 37 CYCLE
     Route: 042
     Dates: start: 20231129
  14. FOSAPREPITANT [Concomitant]
     Active Substance: FOSAPREPITANT
     Dosage: 150 MILLIGRAM, ONE TIME DOSE 1 OF 6 CYCLE
     Route: 042
     Dates: start: 20231107
  15. NIVESTYM [Concomitant]
     Active Substance: FILGRASTIM-AAFI
     Dosage: 480 MICROGRAM, ONE TIME DOSE 2 OF 25 CYCLE
     Route: 058
     Dates: start: 20240524
  16. ATORVASTATIN [Concomitant]
     Active Substance: ATORVASTATIN
     Dosage: UNK
  17. CARBOXYMETHYLCELLULOSE [Concomitant]
     Active Substance: CARBOXYMETHYLCELLULOSE
     Dosage: UNK
  18. DEXTROMETHORPHAN [Concomitant]
     Active Substance: DEXTROMETHORPHAN
     Dosage: UNK
  19. POLYETHYLENE GLYCOL [Concomitant]
     Active Substance: POLYETHYLENE GLYCOL
     Dosage: UNK
  20. PROCHLORPERAZINE [Concomitant]
     Active Substance: PROCHLORPERAZINE
     Dosage: UNK
  21. HYDROXYZINE [Concomitant]
     Active Substance: HYDROXYZINE HYDROCHLORIDE
     Dosage: UNK
  22. NALOXONE [Concomitant]
     Active Substance: NALOXONE
     Dosage: UNK

REACTIONS (9)
  - Bladder cancer recurrent [Unknown]
  - Pancytopenia [Unknown]
  - Polychromasia [Unknown]
  - Blood glucose increased [Unknown]
  - Anion gap increased [Unknown]
  - Blood urea decreased [Unknown]
  - Aspartate aminotransferase increased [Unknown]
  - Blood alkaline phosphatase increased [Unknown]
  - Glomerular filtration rate decreased [Unknown]

NARRATIVE: CASE EVENT DATE: 20240724
